FAERS Safety Report 5414836-1 (Version None)
Quarter: 2007Q3

REPORT INFORMATION
  Report Type: 
  Country: None (occurrence: None)
  Receive Date: 20070815
  Receipt Date: 20070809
  Transmission Date: 20080115
  Serious: Yes (Disabling)
  Sender: FDA-Public Use
  Company Number: PHRM2007FR01853

PATIENT
  Age: 68 Year
  Sex: Female
  Weight: 66 kg

DRUGS (1)
  1. ZOMETA [Suspect]
     Indication: MULTIPLE MYELOMA
     Dosage: 4 MG, QMO
     Route: 042
     Dates: start: 20030801, end: 20070101

REACTIONS (3)
  - INFECTION [None]
  - OSTEONECROSIS [None]
  - TOOTH EXTRACTION [None]
